FAERS Safety Report 10037211 (Version 2)
Quarter: 2014Q2

REPORT INFORMATION
  Report Type: Spontaneous
  Country: US (occurrence: US)
  Receive Date: 20140326
  Receipt Date: 20140530
  Transmission Date: 20141212
  Serious: Yes (Hospitalization)
  Sender: FDA-Public Use
  Company Number: 2014SP001619

PATIENT
  Age: 45 Year
  Sex: Female

DRUGS (5)
  1. LATUDA [Suspect]
     Route: 048
  2. LATUDA [Suspect]
     Route: 048
  3. LITHIUM [Suspect]
  4. LITHIUM [Suspect]
  5. SEROQUEL XR [Concomitant]

REACTIONS (1)
  - Toxicity to various agents [Unknown]
